FAERS Safety Report 11450823 (Version 1)
Quarter: 2015Q3

REPORT INFORMATION
  Report Type: Spontaneous
  Country: US (occurrence: US)
  Receive Date: 20150903
  Receipt Date: 20150903
  Transmission Date: 20151125
  Serious: No
  Sender: FDA-Public Use
  Company Number: US-ROCHE-1058575

PATIENT

DRUGS (6)
  1. REYATAZ [Concomitant]
     Active Substance: ATAZANAVIR SULFATE
  2. RIBAVIRIN. [Concomitant]
     Active Substance: RIBAVIRIN
     Route: 065
  3. EMTRICITABINE [Concomitant]
     Active Substance: EMTRICITABINE
     Dosage: REPORTED AS EMTRIVA
     Route: 065
  4. PEGASYS [Suspect]
     Active Substance: PEGINTERFERON ALFA-2A
     Indication: PRODUCT USED FOR UNKNOWN INDICATION
     Route: 065
  5. COPEGUS [Suspect]
     Active Substance: RIBAVIRIN
     Indication: PRODUCT USED FOR UNKNOWN INDICATION
     Route: 065
  6. TELAPREVIR [Concomitant]
     Active Substance: TELAPREVIR

REACTIONS (2)
  - Hepatitis C RNA increased [Unknown]
  - HIV infection [Unknown]
